FAERS Safety Report 5214752-4 (Version None)
Quarter: 2007Q1

REPORT INFORMATION
  Report Type: 
  Country: None (occurrence: None)
  Receive Date: 20070122
  Receipt Date: 20070115
  Transmission Date: 20070707
  Serious: Yes (Life-Threatening, Other)
  Sender: FDA-Public Use
  Company Number: DE-SHR-DE-2006-034875

PATIENT
  Age: 79 Year
  Sex: Female
  Weight: 71 kg

DRUGS (16)
  1. MAGNEVIST [Suspect]
     Dosage: 14 ML, 1 DOSE
     Dates: start: 20061103, end: 20061103
  2. DIGIMERCK MINOR [Concomitant]
     Dosage: .07 MG, 1X/DAY
  3. CALCIUM ACETATE [Concomitant]
     Dosage: 500 MG, 4 TABS/DAY
  4. UNAT [Concomitant]
     Dosage: 50 MG, 1X/DAY
  5. VITARENAL [Concomitant]
     Dosage: 1 TAB(S), 1X/DAY
  6. INSULIN ACTRAPHAN HUMAN [Concomitant]
     Dosage: 44 IU, UNK
  7. INSUMAN COMB [Concomitant]
     Dosage: 42 IU IN THE MORNING OR AS REQ'D
  8. SODIUM BICARBONATE [Concomitant]
  9. LORZAAR [Concomitant]
     Dosage: 50 MG, AS REQ'D
  10. DILATREND [Concomitant]
     Dosage: 3.125 MG, AS REQ'D
  11. EUTHYROX [Concomitant]
     Dosage: 100 A?G, 1X/DAY
  12. MARCUMAR [Concomitant]
     Dosage: AFTER QUICK'S TEST
  13. NEXIUM [Concomitant]
     Dosage: 40 UNK, UNK
  14. FERRLECIT                               /GFR/ [Concomitant]
     Dosage: 40 MG, 1X/WEEK
  15. DEKRISTOL [Concomitant]
     Dosage: 1 CAP(S) EVERY 2 WEEKS
  16. ARANESP [Concomitant]
     Dosage: 40 A?G, ON THURSDAYS

REACTIONS (6)
  - C-REACTIVE PROTEIN INCREASED [None]
  - CHILLS [None]
  - GENERAL PHYSICAL HEALTH DETERIORATION [None]
  - LEUKOCYTOSIS [None]
  - NAUSEA [None]
  - PYREXIA [None]
